FAERS Safety Report 5946520-X (Version None)
Quarter: 2008Q4

REPORT INFORMATION
  Report Type: 
  Country: None (occurrence: None)
  Receive Date: 20081110
  Receipt Date: 20081029
  Transmission Date: 20090506
  Serious: Yes (Life-Threatening)
  Sender: FDA-Public Use
  Company Number: B0544085A

PATIENT
  Age: 56 Year
  Sex: Male

DRUGS (5)
  1. NIMBEX [Suspect]
     Route: 042
     Dates: start: 20080526, end: 20080526
  2. SUFENTANIL CITRATE [Suspect]
     Route: 042
     Dates: start: 20080526
  3. PROPOFOL [Suspect]
     Route: 042
     Dates: start: 20080526
  4. CEFAZOLIN [Suspect]
     Indication: PROPHYLAXIS
     Route: 042
     Dates: start: 20080526
  5. GELOFUSINE [Suspect]
     Route: 042
     Dates: start: 20080526

REACTIONS (4)
  - BLOOD PRESSURE SYSTOLIC DECREASED [None]
  - ERYTHEMA [None]
  - HYPERSENSITIVITY [None]
  - TACHYCARDIA [None]
